FAERS Safety Report 15705147 (Version 1)
Quarter: 2018Q4

REPORT INFORMATION
  Report Type: Report from Study
  Country: IT (occurrence: IT)
  Receive Date: 20181210
  Receipt Date: 20181210
  Transmission Date: 20190205
  Serious: Yes (Hospitalization)
  Sender: FDA-Public Use
  Company Number: IT-BAYER-2018-224354

PATIENT
  Age: 84 Year
  Sex: Male

DRUGS (7)
  1. METFORAL [Concomitant]
     Active Substance: METFORMIN HYDROCHLORIDE
     Dosage: UNK
  2. BISOPROLOLO TEVA [Concomitant]
     Active Substance: BISOPROLOL FUMARATE
     Dosage: UNK
  3. CONGESCOR [Concomitant]
     Active Substance: BISOPROLOL
     Dosage: UNK
  4. PANTORC [Concomitant]
     Active Substance: PANTOPRAZOLE SODIUM
     Dosage: UNK
  5. GIANT [Concomitant]
     Active Substance: AMLODIPINE BESYLATE\OLMESARTAN MEDOXOMIL
     Dosage: UNK
  6. TORVAST [Concomitant]
     Active Substance: ATORVASTATIN
     Dosage: UNK
  7. CARDIOASPIRIN [Suspect]
     Active Substance: ASPIRIN
     Indication: THROMBOSIS PROPHYLAXIS
     Dosage: 1 DF, QD
     Route: 048
     Dates: start: 20090101, end: 20181116

REACTIONS (3)
  - Pallor [Recovering/Resolving]
  - Anaemia [Recovering/Resolving]
  - Asthenia [Recovering/Resolving]

NARRATIVE: CASE EVENT DATE: 20181116
